FAERS Safety Report 8721123 (Version 2)
Quarter: 2012Q4

REPORT INFORMATION
  Report Type: 
  Country: US (occurrence: US)
  Receive Date: 20120813
  Receipt Date: 20120828
  Transmission Date: 20130627
  Serious: Yes (Other)
  Sender: FDA-Public Use
  Company Number: US-AMGEN-USASP2012044131

PATIENT
  Age: 60 Year
  Sex: Female
  Weight: 72.56 kg

DRUGS (16)
  1. EPOGEN [Suspect]
     Indication: RENAL FAILURE CHRONIC
     Dosage: 4000 IU, qwk
     Dates: start: 20100517
  2. EPOGEN [Suspect]
     Dosage: 20000 IU, qwk
     Route: 058
     Dates: start: 20120511
  3. EPOGEN [Suspect]
     Dosage: 10000 IU, qwk
     Dates: start: 201107
  4. EPOGEN [Suspect]
     Dosage: 20000 IU, qwk
     Route: 058
  5. SENSIPAR [Concomitant]
     Indication: PRODUCT USED FOR UNKNOWN INDICATION
     Dosage: 30 mg, qd
     Route: 048
  6. COREG [Concomitant]
     Dosage: 25 mg, bid
     Route: 048
  7. ULTRAM [Concomitant]
     Dosage: 50 mg, bid
     Route: 048
  8. LYRICA [Concomitant]
     Dosage: 50 mg, qd
     Route: 048
  9. CAPOTEN [Concomitant]
     Dosage: 12.5 mg, UNK
     Route: 048
  10. ZYLOPRIM [Concomitant]
     Dosage: 100 mg, qd
     Route: 048
  11. KLONOPIN [Concomitant]
     Dosage: 1 mg, qd
     Route: 048
  12. DIALYVITE WITH ZINC [Concomitant]
     Dosage: UNK UNK, qd
     Route: 048
  13. ZEMPLAR [Concomitant]
     Dosage: 1 mug, qd
     Route: 048
  14. PRAVACHOL [Concomitant]
     Dosage: 20 mg, qd
     Route: 048
  15. RENVELA [Concomitant]
     Dosage: 800 mg, tid
     Route: 048
  16. RENVELA [Concomitant]
     Dosage: 1600 mg, tid
     Route: 048

REACTIONS (2)
  - Therapeutic response decreased [Not Recovered/Not Resolved]
  - Anaemia [Not Recovered/Not Resolved]
